FAERS Safety Report 7602508-4 (Version None)
Quarter: 2011Q3

REPORT INFORMATION
  Report Type: 
  Country: None (occurrence: None)
  Receive Date: 20110701
  Receipt Date: 20110621
  Transmission Date: 20111222
  Serious: Yes (Hospitalization)
  Sender: FDA-Public Use
  Company Number: UCM201106-000020

PATIENT
  Age: 3 Year
  Sex: Male
  Weight: 15.8759 kg

DRUGS (6)
  1. VALPROIC ACID SYRUP [Suspect]
     Indication: EPILEPSY
     Dosage: 7 ML TWICE DAILY, ORAL
     Route: 048
     Dates: start: 20090301
  2. CLONIDINE [Suspect]
     Indication: SLEEP DISORDER
     Dosage: 0.1 MG ONCE DAILY, ORAL ; 0.2 MG ONCE DAILY, ORAL
     Route: 048
     Dates: start: 20090301, end: 20110101
  3. CLONIDINE [Suspect]
     Indication: HYPERTENSION
     Dosage: 0.1 MG ONCE DAILY, ORAL ; 0.2 MG ONCE DAILY, ORAL
     Route: 048
     Dates: start: 20090301, end: 20110101
  4. CLONIDINE [Suspect]
     Indication: SLEEP DISORDER
     Dosage: 0.1 MG ONCE DAILY, ORAL ; 0.2 MG ONCE DAILY, ORAL
     Route: 048
     Dates: start: 20110101, end: 20110401
  5. CLONIDINE [Suspect]
     Indication: HYPERTENSION
     Dosage: 0.1 MG ONCE DAILY, ORAL ; 0.2 MG ONCE DAILY, ORAL
     Route: 048
     Dates: start: 20110101, end: 20110401
  6. PHENOBARBITAL(SYRUP) [Suspect]
     Indication: EPILEPSY
     Dosage: 5 ML TWICE DAILY, ORAL
     Route: 048
     Dates: start: 20080101, end: 20110501

REACTIONS (3)
  - DEPRESSED LEVEL OF CONSCIOUSNESS [None]
  - CONVULSION [None]
  - BRADYCARDIA [None]
